FAERS Safety Report 12106674 (Version 2)
Quarter: 2017Q1

REPORT INFORMATION
  Report Type: Spontaneous
  Country: US (occurrence: US)
  Receive Date: 20160223
  Receipt Date: 20170224
  Transmission Date: 20170428
  Serious: No
  Sender: FDA-Public Use
  Company Number: US-BRACCO-013050

PATIENT
  Age: 53 Year
  Sex: Female
  Weight: 52 kg

DRUGS (3)
  1. ISOVUE 370 [Suspect]
     Active Substance: IOPAMIDOL
     Indication: COMPUTERISED TOMOGRAM
     Dosage: 3ML PER SECOND
     Route: 042
     Dates: start: 20151222, end: 20151222
  2. SALINE [Concomitant]
     Active Substance: SODIUM CHLORIDE
     Dates: start: 20151222, end: 20151222
  3. SALINE [Concomitant]
     Active Substance: SODIUM CHLORIDE
     Dates: start: 20151222, end: 20151222

REACTIONS (1)
  - Drug ineffective [Recovered/Resolved]

NARRATIVE: CASE EVENT DATE: 20151222
